FAERS Safety Report 18814957 (Version 2)
Quarter: 2021Q2

REPORT INFORMATION
  Report Type: Spontaneous
  Country: US (occurrence: US)
  Receive Date: 20210201
  Receipt Date: 20210401
  Transmission Date: 20210717
  Serious: Yes (Other)
  Sender: FDA-Public Use
  Company Number: US-GLAXOSMITHKLINE-US2021GSK023735

PATIENT
  Sex: Female

DRUGS (4)
  1. ZANTAC [Suspect]
     Active Substance: RANITIDINE HYDROCHLORIDE
     Indication: ILL-DEFINED DISORDER
     Dosage: 150 MG, QD
     Route: 065
     Dates: start: 201201, end: 201401
  2. RANITIDINE. [Suspect]
     Active Substance: RANITIDINE
     Indication: ILL-DEFINED DISORDER
     Dosage: 150 MG, WE
     Route: 065
     Dates: start: 201201, end: 201401
  3. ZANTAC [Suspect]
     Active Substance: RANITIDINE HYDROCHLORIDE
     Indication: ILL-DEFINED DISORDER
     Dosage: 150 MG, QD
     Route: 065
     Dates: start: 201201, end: 201401
  4. RANITIDINE. [Suspect]
     Active Substance: RANITIDINE
     Indication: ILL-DEFINED DISORDER
     Dosage: 150 MG, WE
     Route: 065
     Dates: start: 201201, end: 201401

REACTIONS (1)
  - Lung neoplasm malignant [Unknown]
